APPROVED DRUG PRODUCT: DOXYCYCLINE
Active Ingredient: DOXYCYCLINE
Strength: EQ 100MG BASE
Dosage Form/Route: CAPSULE;ORAL
Application: A065053 | Product #002 | TE Code: AB
Applicant: SUN PHARMACEUTICAL INDUSTRIES LTD
Approved: Nov 22, 2000 | RLD: No | RS: Yes | Type: RX